FAERS Safety Report 8208817-2 (Version None)
Quarter: 2012Q1

REPORT INFORMATION
  Report Type: 
  Country: None (occurrence: None)
  Receive Date: 20120314
  Receipt Date: 20120308
  Transmission Date: 20120608
  Serious: Yes (Hospitalization, Other)
  Sender: FDA-Public Use
  Company Number: US-PFIZER INC-2012062727

PATIENT
  Sex: Male
  Weight: 86.168 kg

DRUGS (2)
  1. TAMSULOSIN [Concomitant]
     Indication: DYSURIA
     Dosage: 0.4 MG, 1X/DAY
  2. DILANTIN [Suspect]
     Indication: CONVULSION
     Dosage: 500 MG, DAILY
     Route: 048

REACTIONS (6)
  - BLOOD CHOLESTEROL INCREASED [None]
  - HERNIA [None]
  - CONVULSION [None]
  - MALAISE [None]
  - HYPERPHAGIA [None]
  - FALL [None]
